FAERS Safety Report 4284195-9 (Version None)
Quarter: 2004Q1

REPORT INFORMATION
  Report Type: 
  Country: None (occurrence: None)
  Receive Date: 20040130
  Receipt Date: 20040120
  Transmission Date: 20041129
  Serious: Yes (Hospitalization)
  Sender: FDA-Public Use
  Company Number: CA-JNJFOC-20031204379

PATIENT
  Age: 47 Year
  Sex: Female

DRUGS (5)
  1. REMICADE [Suspect]
     Indication: RHEUMATOID ARTHRITIS
     Dosage: 200 MG, INTRAVENOUS
     Route: 042
     Dates: start: 20030909
  2. PREDNISONE [Concomitant]
  3. MTX (TABLETS) (METHOTREXATE SODIUM) [Concomitant]
  4. FOSAMAX [Concomitant]
  5. CARBOCAL D (TUMS; OLD FORM;) [Concomitant]

REACTIONS (3)
  - CELLULITIS [None]
  - LYMPHANGITIS [None]
  - STREPTOCOCCAL SEPSIS [None]
